FAERS Safety Report 14250099 (Version 7)
Quarter: 2018Q1

REPORT INFORMATION
  Report Type: Report from Study
  Country: BR (occurrence: BR)
  Receive Date: 20171205
  Receipt Date: 20180305
  Transmission Date: 20180508
  Serious: Yes (Death, Hospitalization, Other)
  Sender: FDA-Public Use
  Company Number: BR-ALEXION PHARMACEUTICALS INC.-A201713181

PATIENT
  Age: 32 Year
  Sex: Male

DRUGS (2)
  1. SOLIRIS [Suspect]
     Active Substance: ECULIZUMAB
     Dosage: 900 MG, Q2W
     Route: 042
     Dates: start: 20131225
  2. SOLIRIS [Suspect]
     Active Substance: ECULIZUMAB
     Indication: PAROXYSMAL NOCTURNAL HAEMOGLOBINURIA
     Dosage: 600 MG, QW
     Route: 042
     Dates: start: 20131127, end: 20131218

REACTIONS (17)
  - Fatigue [Recovering/Resolving]
  - Inappropriate schedule of drug administration [Recovered/Resolved]
  - Cardiac arrest [Unknown]
  - Thrombosis [Fatal]
  - Condition aggravated [Unknown]
  - Respiratory failure [Unknown]
  - Abdominal pain [Recovering/Resolving]
  - Haematochezia [Unknown]
  - Sepsis [Unknown]
  - Vomiting [Unknown]
  - Blood urine present [Unknown]
  - Renal failure [Unknown]
  - Dyspnoea [Recovered/Resolved]
  - Septic shock [Fatal]
  - Platelet count decreased [Not Recovered/Not Resolved]
  - Haemoglobin decreased [Not Recovered/Not Resolved]
  - Asthenia [Recovering/Resolving]

NARRATIVE: CASE EVENT DATE: 20171114
